FAERS Safety Report 13784346 (Version 1)
Quarter: 2017Q3

REPORT INFORMATION
  Report Type: Spontaneous
  Country: US (occurrence: US)
  Receive Date: 20170724
  Receipt Date: 20170724
  Transmission Date: 20171127
  Serious: Yes (Life-Threatening, Hospitalization)
  Sender: FDA-Public Use
  Company Number: PHHY2017US105277

PATIENT
  Age: 56 Year
  Sex: Female

DRUGS (1)
  1. HEPARIN [Suspect]
     Active Substance: HEPARIN SODIUM
     Indication: PULMONARY EMBOLISM
     Route: 042

REACTIONS (6)
  - Adrenal disorder [Recovering/Resolving]
  - Thrombosis [Recovering/Resolving]
  - Adrenal haemorrhage [Recovering/Resolving]
  - Adrenal insufficiency [Recovering/Resolving]
  - Adrenomegaly [Recovering/Resolving]
  - Heparin-induced thrombocytopenia [Recovering/Resolving]
